FAERS Safety Report 9925033 (Version 3)
Quarter: 2014Q2

REPORT INFORMATION
  Report Type: Spontaneous
  Country: US (occurrence: US)
  Receive Date: 20140226
  Receipt Date: 20140410
  Transmission Date: 20141212
  Serious: Yes (Other)
  Sender: FDA-Public Use
  Company Number: US-PFIZER INC-2014053753

PATIENT
  Age: 58 Year
  Sex: Male

DRUGS (10)
  1. SUTENT [Suspect]
     Indication: RENAL CANCER
     Dosage: 25 MG ONCE DAILY (4 WEEKS ON, 2 WEEKS OFF)
     Route: 048
     Dates: start: 20140108
  2. SUTENT [Suspect]
     Dosage: 25 MG, CYCLIC (1 DAILY, 4 WKS ON, 2 WKS OFF)
     Route: 048
     Dates: start: 20140115, end: 20140225
  3. SUTENT [Suspect]
     Dosage: UNK
     Dates: end: 20140225
  4. SUTENT [Suspect]
     Dosage: 12.5 MG, DAILY
     Route: 048
     Dates: start: 20140306
  5. LACTULOSE [Concomitant]
     Dosage: UNK
  6. FERROUS SULFATE [Concomitant]
     Dosage: UNK
  7. METHADONE [Concomitant]
     Dosage: UNK
  8. MAGNESIUM [Concomitant]
     Dosage: UNK
  9. LASIX [Concomitant]
     Dosage: UNK
  10. POTASSIUM CHLORIDE [Concomitant]
     Dosage: UNK

REACTIONS (2)
  - Fatigue [Unknown]
  - Malaise [Unknown]
